FAERS Safety Report 19966090 (Version 1)
Quarter: 2021Q4

REPORT INFORMATION
  Report Type: Spontaneous
  Country: US (occurrence: US)
  Receive Date: 20211018
  Receipt Date: 20211018
  Transmission Date: 20220303
  Serious: Yes (Other)
  Sender: FDA-Public Use
  Company Number: US-PFIZER INC-202101380321

PATIENT
  Age: 63 Year
  Sex: Female
  Weight: 72.56 kg

DRUGS (2)
  1. DILANTIN [Suspect]
     Active Substance: PHENYTOIN
     Indication: Epilepsy
     Dosage: 100 MG, 4X/DAY
     Dates: start: 1964
  2. MYSOLINE [Concomitant]
     Active Substance: PRIMIDONE
     Indication: Epilepsy
     Dosage: 250 MG, 4X/DAY
     Dates: start: 1964

REACTIONS (2)
  - Seizure [Unknown]
  - Pyrexia [Unknown]
